FAERS Safety Report 8063740-1 (Version None)
Quarter: 2012Q1

REPORT INFORMATION
  Report Type: 
  Country: None (occurrence: None)
  Receive Date: 20120123
  Receipt Date: 20120117
  Transmission Date: 20120608
  Serious: Yes (Hospitalization)
  Sender: FDA-Public Use
  Company Number: PHHY2012JP004134

PATIENT
  Age: 84 Year
  Sex: Female
  Weight: 29 kg

DRUGS (9)
  1. CEFEPIME [Suspect]
     Indication: PYREXIA
  2. PRECEDEX [Concomitant]
  3. NITROGLYCERIN [Concomitant]
  4. PHYSIOSOL 3 [Concomitant]
  5. HEPARIN SODIUM [Concomitant]
  6. CEFEPIME [Suspect]
     Indication: SEPSIS
     Dosage: 3 G, QD
     Route: 042
     Dates: start: 20111207, end: 20111209
  7. NOVOLIN R [Concomitant]
  8. HARTMANN [Concomitant]
  9. GOREI-SAN [Concomitant]
     Route: 048

REACTIONS (4)
  - ASPARTATE AMINOTRANSFERASE INCREASED [None]
  - ALANINE AMINOTRANSFERASE INCREASED [None]
  - LIVER DISORDER [None]
  - BLOOD LACTATE DEHYDROGENASE INCREASED [None]
